FAERS Safety Report 7579035-6 (Version None)
Quarter: 2011Q2

REPORT INFORMATION
  Report Type: 
  Country: None (occurrence: None)
  Receive Date: 20110628
  Receipt Date: 20110623
  Transmission Date: 20111010
  Serious: Yes (Death)
  Sender: FDA-Public Use
  Company Number: PHHY2011AU56171

PATIENT
  Age: 41 Year

DRUGS (7)
  1. OLANZAPINE [Suspect]
     Dosage: UNK
  2. METHADONE HCL [Suspect]
     Dosage: UNK
  3. NORDIAZEPAM [Suspect]
     Dosage: UNK
  4. METHAMPHETAMINE HYDROCHLORIDE [Suspect]
     Dosage: UNK
  5. DIAZEPAM [Suspect]
     Dosage: UNK
  6. CITALOPRAM HYDROBROMIDE [Suspect]
     Dosage: UNK
  7. TETRAHYDROCANNABINOL [Suspect]
     Dosage: UNK

REACTIONS (3)
  - POISONING DELIBERATE [None]
  - TOXICITY TO VARIOUS AGENTS [None]
  - RESPIRATORY DEPRESSION [None]
